FAERS Safety Report 11611229 (Version 3)
Quarter: 2015Q4

REPORT INFORMATION
  Report Type: Spontaneous
  Country: JP (occurrence: JP)
  Receive Date: 20151008
  Receipt Date: 20151013
  Transmission Date: 20160304
  Serious: Yes (Hospitalization, Other)
  Sender: FDA-Public Use
  Company Number: JP-TEVA-2015-JP-001997J

PATIENT
  Age: 73 Year
  Sex: Male

DRUGS (5)
  1. SOLITA-T NO.3 [Concomitant]
     Dosage: 500 ML DAILY;
     Route: 041
     Dates: start: 20150821, end: 20150825
  2. PICILLIBACTA [Concomitant]
     Active Substance: AMPICILLIN SODIUM\SULBACTAM SODIUM
     Indication: PNEUMONIA
     Dosage: 6 GRAM DAILY;
     Route: 041
     Dates: start: 20150821, end: 20150825
  3. PRINK INJECTION 10 MICROGRAM [Suspect]
     Active Substance: ALPROSTADIL
     Indication: OEDEMA PERIPHERAL
     Dosage: 10 MICROGRAM DAILY;
     Route: 041
     Dates: start: 20150821, end: 20150825
  4. C-PARA [Concomitant]
     Indication: VITAMIN SUPPLEMENTATION
     Dosage: 2 ML DAILY;
     Route: 041
     Dates: start: 20150822, end: 20150825
  5. PANTHENYL [Concomitant]
     Indication: VITAMIN SUPPLEMENTATION
     Route: 065
     Dates: start: 20150822, end: 20150825

REACTIONS (3)
  - Hepatic function abnormal [Unknown]
  - Chest discomfort [Recovered/Resolved]
  - Interstitial lung disease [Recovered/Resolved]

NARRATIVE: CASE EVENT DATE: 20150821
